FAERS Safety Report 7781710-5 (Version None)
Quarter: 2011Q3

REPORT INFORMATION
  Report Type: 
  Country: None (occurrence: None)
  Receive Date: 20110927
  Receipt Date: 20100223
  Transmission Date: 20111222
  Serious: Yes (Other)
  Sender: FDA-Public Use
  Company Number: US-GLAXOSMITHKLINE-A0848509A

PATIENT
  Sex: Male

DRUGS (2)
  1. CORTICOSTEROIDS [Concomitant]
     Indication: IDIOPATHIC THROMBOCYTOPENIC PURPURA
  2. PROMACTA [Suspect]
     Indication: IDIOPATHIC THROMBOCYTOPENIC PURPURA
     Dosage: 75MG PER DAY
     Dates: start: 20090926, end: 20110714

REACTIONS (5)
  - NEOPLASM MALIGNANT [None]
  - HAEMATOLOGICAL MALIGNANCY [None]
  - VERTIGO [None]
  - DRUG INEFFECTIVE [None]
  - OEDEMA PERIPHERAL [None]
